FAERS Safety Report 8373045-7 (Version None)
Quarter: 2012Q2

REPORT INFORMATION
  Report Type: 
  Country: None (occurrence: None)
  Receive Date: 20120521
  Receipt Date: 20120510
  Transmission Date: 20120825
  Serious: Yes (Other)
  Sender: FDA-Public Use
  Company Number: PR-MYLANLABS-2012S1009699

PATIENT
  Sex: Female

DRUGS (1)
  1. AMNESTEEM [Suspect]

REACTIONS (1)
  - MATERNAL EXPOSURE DURING PREGNANCY [None]
